FAERS Safety Report 5777063-4 (Version None)
Quarter: 2008Q2

REPORT INFORMATION
  Report Type: 
  Country: None (occurrence: None)
  Receive Date: 20080616
  Receipt Date: 20080212
  Transmission Date: 20081010
  Serious: Yes (Hospitalization)
  Sender: FDA-Public Use
  Company Number: 8029820

PATIENT
  Age: 15 Year
  Sex: Female

DRUGS (6)
  1. NIFEDIPINE [Suspect]
     Dosage: PO
     Route: 048
  2. CYCLOSPORINE [Suspect]
     Indication: IMMUNOSUPPRESSION
     Dosage: PO
     Route: 048
  3. CYCLOSPORINE [Suspect]
     Indication: RENAL TRANSPLANT
     Dosage: PO
     Route: 048
  4. AZATHIOPRINE [Concomitant]
  5. ENALAPRIL MALEATE [Concomitant]
  6. PREDNISOLONE [Concomitant]

REACTIONS (2)
  - GINGIVAL HYPERPLASIA [None]
  - TOOTH HYPOPLASIA [None]
